FAERS Safety Report 17186697 (Version 1)
Quarter: 2019Q4

REPORT INFORMATION
  Report Type: Report from Study
  Country: US (occurrence: US)
  Receive Date: 20191220
  Receipt Date: 20191220
  Transmission Date: 20200122
  Serious: Yes (Other)
  Sender: FDA-Public Use
  Company Number: US-BIOGEN-2019BI00818315

PATIENT
  Sex: Female

DRUGS (1)
  1. TECFIDERA [Suspect]
     Active Substance: DIMETHYL FUMARATE
     Indication: MULTIPLE SCLEROSIS
     Route: 048
     Dates: start: 20151005, end: 20151204

REACTIONS (9)
  - Mobility decreased [Recovered/Resolved]
  - Fine motor skill dysfunction [Recovered/Resolved with Sequelae]
  - Choking [Recovered/Resolved]
  - Speech disorder [Recovered/Resolved with Sequelae]
  - Hypothyroidism [Recovered/Resolved]
  - Motor dysfunction [Recovered/Resolved with Sequelae]
  - Hyperthyroidism [Recovered/Resolved]
  - Aphasia [Recovered/Resolved]
  - Restlessness [Recovered/Resolved]

NARRATIVE: CASE EVENT DATE: 2015
